FAERS Safety Report 10959052 (Version 2)
Quarter: 2015Q2

REPORT INFORMATION
  Report Type: Spontaneous
  Country: US (occurrence: US)
  Receive Date: 20150327
  Receipt Date: 20150525
  Transmission Date: 20150821
  Serious: No
  Sender: FDA-Public Use
  Company Number: US-JNJFOC-20141205646

PATIENT
  Sex: Female
  Weight: 83.92 kg

DRUGS (2)
  1. DURAGESIC [Suspect]
     Active Substance: FENTANYL
     Indication: PAIN
     Dosage: 7 OR 8 YEARS AGO
     Route: 062
  2. NEXIUM [Concomitant]
     Active Substance: ESOMEPRAZOLE MAGNESIUM
     Indication: MUSCLE RELAXANT THERAPY
     Route: 048

REACTIONS (1)
  - Pain [Not Recovered/Not Resolved]
